FAERS Safety Report 17712594 (Version 1)
Quarter: 2020Q2

REPORT INFORMATION
  Report Type: Spontaneous
  Country: TR (occurrence: TR)
  Receive Date: 20200427
  Receipt Date: 20200427
  Transmission Date: 20200714
  Serious: Yes (Hospitalization, Other)
  Sender: FDA-Public Use
  Company Number: TR-MACLEODS PHARMACEUTICALS US LTD-MAC2020026286

PATIENT

DRUGS (1)
  1. SILDENAFIL 50 MG [Suspect]
     Active Substance: SILDENAFIL
     Indication: PRODUCT USED FOR UNKNOWN INDICATION
     Dosage: 50 MILLIGRAM
     Route: 065

REACTIONS (4)
  - Aortic dissection [Recovered/Resolved]
  - Left ventricular failure [Recovered/Resolved]
  - Left ventricular hypertrophy [Recovered/Resolved]
  - Tachycardia [Recovered/Resolved]
